FAERS Safety Report 5737712-3 (Version None)
Quarter: 2008Q2

REPORT INFORMATION
  Report Type: 
  Country: None (occurrence: None)
  Receive Date: 20080514
  Receipt Date: 20080502
  Transmission Date: 20081010
  Serious: Yes (Congenital Anomaly)
  Sender: FDA-Public Use
  Company Number: A0680563A

PATIENT
  Sex: Male

DRUGS (2)
  1. PAXIL CR [Suspect]
     Indication: STRESS
     Dosage: 12.5MG PER DAY
     Dates: start: 20030625, end: 20040301
  2. VITAMIN TAB [Concomitant]
     Indication: PREGNANCY
     Dates: start: 20030801, end: 20040301

REACTIONS (4)
  - CONGENITAL ANOMALY [None]
  - DRUG EXPOSURE DURING PREGNANCY [None]
  - PATENT DUCTUS ARTERIOSUS [None]
  - VENTRICULAR SEPTAL DEFECT [None]
